FAERS Safety Report 4837438-4 (Version None)
Quarter: 2005Q4

REPORT INFORMATION
  Report Type: 
  Country: None (occurrence: None)
  Receive Date: 20051122
  Receipt Date: 20051122
  Transmission Date: 20060501
  Serious: No
  Sender: FDA-Public Use
  Company Number: None

PATIENT
  Age: 79 Year
  Sex: Female
  Weight: 77.1115 kg

DRUGS (2)
  1. OPTICLIK-R- AVENTIS PHARMACEUTICALS [Suspect]
     Indication: DIABETES MELLITUS
     Dosage: 13 UNITS VIA PEN DAILY IM
     Route: 042
     Dates: start: 20050801, end: 20051121
  2. NOVO FLEX PEN [Concomitant]

REACTIONS (2)
  - MEDICATION ERROR [None]
  - PHARMACEUTICAL PRODUCT COMPLAINT [None]
